FAERS Safety Report 16115229 (Version 2)
Quarter: 2019Q2

REPORT INFORMATION
  Report Type: Report from Study
  Country: US (occurrence: US)
  Receive Date: 20190325
  Receipt Date: 20190412
  Transmission Date: 20190711
  Serious: No
  Sender: FDA-Public Use
  Company Number: US-ALLERGAN-1912263US

PATIENT
  Age: 11 Year
  Sex: Female
  Weight: 50.3 kg

DRUGS (5)
  1. CARIPRAZINE HCL 0.5MG CAP (TBD) [Suspect]
     Active Substance: CARIPRAZINE HYDROCHLORIDE
     Indication: PRODUCT USED FOR UNKNOWN INDICATION
     Dosage: 4.5 MG, QAM
     Route: 048
     Dates: start: 20190227
  2. CARIPRAZINE HCL 0.5MG CAP (TBD) [Suspect]
     Active Substance: CARIPRAZINE HYDROCHLORIDE
     Dosage: 1.5 MG, QAM
     Route: 048
     Dates: start: 20190221, end: 20190223
  3. CARIPRAZINE HCL 0.5MG CAP (TBD) [Suspect]
     Active Substance: CARIPRAZINE HYDROCHLORIDE
     Dosage: 0.5 MG, QAM
     Route: 048
     Dates: start: 20190215, end: 20190217
  4. CARIPRAZINE HCL 0.5MG CAP (TBD) [Suspect]
     Active Substance: CARIPRAZINE HYDROCHLORIDE
     Dosage: 1 MG, QAM
     Route: 048
     Dates: start: 20190218, end: 20190220
  5. CARIPRAZINE HCL 0.5MG CAP (TBD) [Suspect]
     Active Substance: CARIPRAZINE HYDROCHLORIDE
     Dosage: 3 MG, QAM
     Route: 048
     Dates: start: 20190224, end: 20190226

REACTIONS (1)
  - Vision blurred [Recovered/Resolved]

NARRATIVE: CASE EVENT DATE: 20190318
